FAERS Safety Report 4432615-9 (Version None)
Quarter: 2004Q3

REPORT INFORMATION
  Report Type: 
  Country: None (occurrence: None)
  Receive Date: 20040817
  Receipt Date: 20040805
  Transmission Date: 20050211
  Serious: Yes (Other)
  Sender: FDA-Public Use
  Company Number: 200410263BBE

PATIENT
  Age: 18 Year
  Sex: Male

DRUGS (5)
  1. KOATE [Suspect]
     Indication: FACTOR VIII DEFICIENCY
     Dates: start: 19810101, end: 19850101
  2. KOATE-HT [Suspect]
     Indication: FACTOR VIII DEFICIENCY
     Dates: start: 19860101, end: 19880101
  3. FACTORATE (FACTOR VIII (ANTIHAEMOPHILIC FACTOR)) [Suspect]
     Indication: FACTOR VIII DEFICIENCY
     Dates: start: 19810101, end: 19840101
  4. PROFILATE [Suspect]
     Indication: FACTOR VIII DEFICIENCY
     Dates: start: 19810101, end: 19840101
  5. HEMOFIL [Suspect]
     Indication: FACTOR VIII DEFICIENCY
     Dates: start: 19770101

REACTIONS (3)
  - HEPATITIS B VIRUS [None]
  - HEPATITIS C VIRUS [None]
  - HIV INFECTION [None]
